FAERS Safety Report 10225037 (Version 2)
Quarter: 2014Q2

REPORT INFORMATION
  Report Type: Report from Study
  Country: JP (occurrence: JP)
  Receive Date: 20140609
  Receipt Date: 20140609
  Transmission Date: 20141212
  Serious: Yes (Death, Life-Threatening, Hospitalization)
  Sender: FDA-Public Use
  Company Number: JP-SA-THYM-1004097

PATIENT
  Age: 78 Year
  Sex: Male
  Weight: 54 kg

DRUGS (26)
  1. THYMOGLOBULINE [Suspect]
     Indication: APLASTIC ANAEMIA
     Dosage: 200 MG, QD
     Route: 065
     Dates: start: 20120528, end: 20120529
  2. THYMOGLOBULINE [Suspect]
     Indication: APLASTIC ANAEMIA
     Dosage: 200 MG, QD
     Route: 065
     Dates: start: 20120531, end: 20120602
  3. THYMOGLOBULINE [Suspect]
     Indication: APLASTIC ANAEMIA
     Dosage: 200 MG, QD
     Route: 065
     Dates: start: 20120531, end: 20120602
  4. BACTRAMIN [Suspect]
     Indication: INFECTION PROPHYLAXIS
     Dosage: 1 TABLET
     Route: 065
     Dates: start: 20120601, end: 20120616
  5. BACTRAMIN [Suspect]
     Indication: INFECTION PROPHYLAXIS
     Dosage: UNK
     Route: 065
     Dates: start: 20120628, end: 20120730
  6. CRAVIT [Suspect]
     Indication: INFECTION PROPHYLAXIS
     Dosage: 500 MG, UNK
     Route: 065
     Dates: start: 20120601, end: 20120615
  7. CRAVIT [Suspect]
     Indication: INFECTION PROPHYLAXIS
     Dosage: 500 MG, UNK
     Route: 065
     Dates: start: 20120628, end: 20120730
  8. ACICLOVIR [Suspect]
     Indication: ORAL HERPES
     Dosage: 750 MG, QD
     Route: 065
     Dates: start: 20120625, end: 20120627
  9. MEROPEN [Suspect]
     Indication: FEBRILE NEUTROPENIA
     Dosage: .5 G, BID
     Route: 065
     Dates: start: 20120807, end: 20120809
  10. CEFEPIME [Suspect]
     Indication: SEPTIC SHOCK
     Dosage: 1 G, UNK
     Route: 065
     Dates: start: 20120614, end: 20120627
  11. CEFEPIME [Suspect]
     Indication: FEBRILE NEUTROPENIA
     Dosage: 1 G, UNK
     Route: 065
     Dates: start: 20120614, end: 20120627
  12. CEFEPIME [Suspect]
     Indication: SEPTIC SHOCK
     Dosage: 1 G, UNK
     Route: 065
     Dates: start: 20120803, end: 20120807
  13. CEFEPIME [Suspect]
     Indication: FEBRILE NEUTROPENIA
     Dosage: 1 G, UNK
     Route: 065
     Dates: start: 20120803, end: 20120807
  14. METHYLPREDNISOLONE SODIUM SUCCINATE [Concomitant]
     Indication: PROPHYLAXIS
     Dosage: 125 MG, UNK
     Dates: start: 20120528, end: 20120602
  15. LENOGRASTIM [Concomitant]
     Indication: INFECTION PROPHYLAXIS
     Dosage: 100 MCG, UNK
     Dates: start: 20120528, end: 20120811
  16. FAMOTIDINE [Concomitant]
     Indication: PROPHYLAXIS AGAINST GASTROINTESTINAL ULCER
     Dosage: 40 MG, UNK
     Dates: start: 20120603, end: 20120615
  17. FAMOTIDINE [Concomitant]
     Indication: PROPHYLAXIS AGAINST GASTROINTESTINAL ULCER
     Dosage: 20 MG, UNK
     Dates: start: 20120615, end: 20120627
  18. ITRACONAZOLE [Concomitant]
     Indication: INFECTION PROPHYLAXIS
     Dosage: 100 MG, UNK
     Dates: start: 20120601, end: 20120615
  19. ITRACONAZOLE [Concomitant]
     Indication: INFECTION PROPHYLAXIS
     Dosage: 100 MG, UNK
     Dates: start: 20120705, end: 20120806
  20. VALACICLOVIR HYDROCHLORIDE [Concomitant]
     Indication: INFECTION PROPHYLAXIS
     Dosage: 500 MG, UNK
     Dates: start: 20120601, end: 20120616
  21. VALACICLOVIR HYDROCHLORIDE [Concomitant]
     Indication: INFECTION PROPHYLAXIS
     Dosage: 500 MG, UNK
     Dates: start: 20120628
  22. PREDNISOLONE [Concomitant]
     Dosage: 10 DF, UNK
     Dates: start: 20120603, end: 20120607
  23. PREDNISOLONE [Concomitant]
     Dosage: 5 DF, UNK
     Dates: start: 20120608, end: 20120612
  24. PREDNISOLONE [Concomitant]
     Dosage: 2 DF, UNK
     Dates: start: 20120613, end: 20120615
  25. PREDNISOLONE [Concomitant]
     Dosage: 10 MG, INJECTION
     Dates: start: 20120615, end: 20120627
  26. PREDNISOLONE [Concomitant]
     Dosage: 1 DF, UNK
     Dates: start: 20120628, end: 20120709

REACTIONS (6)
  - Septic shock [Recovered/Resolved]
  - Febrile neutropenia [Not Recovered/Not Resolved]
  - Oral herpes [Not Recovered/Not Resolved]
  - Aplastic anaemia [Fatal]
  - Disseminated intravascular coagulation [Recovering/Resolving]
  - Rash erythematous [Not Recovered/Not Resolved]
